FAERS Safety Report 26146112 (Version 1)
Quarter: 2025Q4

REPORT INFORMATION
  Report Type: Report from Study
  Country: US (occurrence: None)
  Receive Date: 20251211
  Receipt Date: 20251211
  Transmission Date: 20260118
  Serious: Yes (Other)
  Sender: UCB
  Company Number: US-UCBSA-2025059524

PATIENT

DRUGS (3)
  1. FENFLURAMINE [Suspect]
     Active Substance: FENFLURAMINE
     Indication: Lennox-Gastaut syndrome
     Dosage: 4.9 MILLILITER, 2X/DAY (BID)
  2. FENFLURAMINE [Suspect]
     Active Substance: FENFLURAMINE
     Dosage: 21.56 MILLIGRAM PER DAY
  3. FENFLURAMINE [Suspect]
     Active Substance: FENFLURAMINE
     Dosage: 4 ML BID X 14 DAYS, THEN 3 ML BID X 14 DAYS, THEN 2 ML BID X 14 DAYS, THEN 1 ML BID X 14 DAYS

REACTIONS (6)
  - Electrocardiogram QT prolonged [Unknown]
  - Blood prolactin increased [Not Recovered/Not Resolved]
  - Aortic dilatation [Unknown]
  - Diastolic dysfunction [Unknown]
  - Left ventricular hypertrophy [Unknown]
  - Drug ineffective [Unknown]
